FAERS Safety Report 25114279 (Version 6)
Quarter: 2025Q3

REPORT INFORMATION
  Report Type: Spontaneous
  Country: US (occurrence: US)
  Receive Date: 20250324
  Receipt Date: 20250923
  Transmission Date: 20251020
  Serious: Yes (Hospitalization, Other)
  Sender: SANOFI AVENTIS
  Company Number: US-SA-2025SA082070

PATIENT
  Age: 72 Year
  Sex: Female
  Weight: 64.41 kg

DRUGS (6)
  1. REZUROCK [Suspect]
     Active Substance: BELUMOSUDIL
     Indication: Graft versus host disease
     Dosage: 200 MG, QD
     Route: 048
     Dates: start: 20230808
  2. REZUROCK [Suspect]
     Active Substance: BELUMOSUDIL
     Dosage: 200 MG, QOD
  3. PROGRAF [Concomitant]
     Active Substance: TACROLIMUS
     Dosage: UNK, QD
  4. TIBSOVO [Concomitant]
     Active Substance: IVOSIDENIB
     Dosage: UNK, QD
  5. MIDOSTAURIN [Concomitant]
     Active Substance: MIDOSTAURIN
  6. ACYCLOVIR [Concomitant]
     Active Substance: ACYCLOVIR

REACTIONS (15)
  - Acute myeloid leukaemia recurrent [Unknown]
  - Alopecia [Unknown]
  - Pneumonia [Unknown]
  - Asthenia [Unknown]
  - Abdominal pain [Unknown]
  - Pyrexia [Unknown]
  - Infection [Not Recovered/Not Resolved]
  - Fatigue [Unknown]
  - Nausea [Unknown]
  - Diarrhoea [Unknown]
  - General physical health deterioration [Unknown]
  - Loss of personal independence in daily activities [Unknown]
  - Haemoglobin decreased [Unknown]
  - Platelet count decreased [Unknown]
  - Inappropriate schedule of product administration [Unknown]

NARRATIVE: CASE EVENT DATE: 20250916
